FAERS Safety Report 10010293 (Version 1)
Quarter: 2014Q1

REPORT INFORMATION
  Report Type: Report from Study
  Country: GB (occurrence: GB)
  Receive Date: 20140314
  Receipt Date: 20140314
  Transmission Date: 20141002
  Serious: Yes (Hospitalization)
  Sender: FDA-Public Use
  Company Number: PHHY2014GB028981

PATIENT
  Age: 72 Year
  Sex: Female

DRUGS (3)
  1. 5-FLUOROURACIL [Suspect]
     Indication: COLORECTAL CANCER METASTATIC
  2. IRINOTECAN [Suspect]
     Indication: COLORECTAL CANCER METASTATIC
  3. BEVACIZUMAB [Suspect]
     Dates: start: 20120829

REACTIONS (2)
  - Lethargy [Unknown]
  - Pyrexia [Recovering/Resolving]
